FAERS Safety Report 23855601 (Version 2)
Quarter: 2024Q2

REPORT INFORMATION
  Report Type: Spontaneous
  Country: US (occurrence: None)
  Receive Date: 20240514
  Receipt Date: 20240611
  Transmission Date: 20240716
  Serious: Yes (Death, Hospitalization, Other)
  Sender: FDA-Public Use
  Company Number: US-ROCHE-3561027

PATIENT
  Age: 59 Year
  Sex: Female
  Weight: 113.5 kg

DRUGS (23)
  1. CELLCEPT [Suspect]
     Active Substance: MYCOPHENOLATE MOFETIL
     Indication: Interstitial lung disease
     Route: 065
  2. TYVASO [Suspect]
     Active Substance: TREPROSTINIL
     Indication: Pulmonary arterial hypertension
     Dosage: CONCENTRATION OF 0.6 MG/ML?DELIVERRED BY TYVASO INHALATION DEVICE (TD-300/A),
  3. TYVASO DPI [Suspect]
     Active Substance: TREPROSTINIL
     Indication: Pulmonary arterial hypertension
     Dates: start: 20240329
  4. TYVASO DPI [Suspect]
     Active Substance: TREPROSTINIL
     Dates: start: 20240329
  5. SILDENAFIL CITRATE [Suspect]
     Active Substance: SILDENAFIL CITRATE
     Indication: Pulmonary hypertension
     Route: 065
  6. ALBUTEROL\IPRATROPIUM [Concomitant]
     Active Substance: ALBUTEROL\IPRATROPIUM
  7. METOPROLOL TARTRATE [Concomitant]
     Active Substance: METOPROLOL TARTRATE
  8. VITAMIN B12 [Concomitant]
     Active Substance: CYANOCOBALAMIN
  9. FLUOXETINE HYDROCHLORIDE [Concomitant]
     Active Substance: FLUOXETINE HYDROCHLORIDE
  10. FOLIC ACID [Concomitant]
     Active Substance: FOLIC ACID
  11. MIRTAZAPINE [Concomitant]
     Active Substance: MIRTAZAPINE
  12. PANTOPRAZOLE [Concomitant]
     Active Substance: PANTOPRAZOLE
  13. ALBUTEROL SULFATE [Concomitant]
     Active Substance: ALBUTEROL SULFATE
  14. ELIQUIS [Concomitant]
     Active Substance: APIXABAN
  15. VITAMIN D2 [Concomitant]
     Active Substance: ERGOCALCIFEROL
  16. GABAPENTIN [Concomitant]
     Active Substance: GABAPENTIN
  17. ADVAIR HFA [Concomitant]
     Active Substance: FLUTICASONE PROPIONATE\SALMETEROL XINAFOATE
  18. BUMETANIDE [Concomitant]
     Active Substance: BUMETANIDE
  19. CLONAZEPAM [Concomitant]
     Active Substance: CLONAZEPAM
  20. DEXAMETHASONE [Concomitant]
     Active Substance: DEXAMETHASONE
  21. OXYGEN [Concomitant]
     Active Substance: OXYGEN
  22. ACETAMINOPHEN [Concomitant]
     Active Substance: ACETAMINOPHEN
  23. ONDANSETRON [Concomitant]
     Active Substance: ONDANSETRON

REACTIONS (9)
  - Hypoxia [Not Recovered/Not Resolved]
  - Dyspnoea [Not Recovered/Not Resolved]
  - Asthenia [Unknown]
  - Fatigue [Not Recovered/Not Resolved]
  - Atelectasis [Recovered/Resolved]
  - Off label use [Unknown]
  - Respiratory disorder [Unknown]
  - Pulmonary hypertension [Unknown]
  - Death [Fatal]
